FAERS Safety Report 9946653 (Version 2)
Quarter: 2014Q2

REPORT INFORMATION
  Report Type: Spontaneous
  Country: US (occurrence: US)
  Receive Date: 20140303
  Receipt Date: 20140403
  Transmission Date: 20141212
  Serious: No
  Sender: FDA-Public Use
  Company Number: US-009507513-1402USA013402

PATIENT
  Age: 29 Year
  Sex: Female
  Weight: 82.99 kg

DRUGS (1)
  1. NEXPLANON [Suspect]
     Dosage: UNK
     Route: 059
     Dates: start: 20140217, end: 20140224

REACTIONS (4)
  - Device difficult to use [Unknown]
  - Impaired healing [Recovered/Resolved]
  - Product quality issue [Unknown]
  - No adverse event [Unknown]
